FAERS Safety Report 5815884-X (Version None)
Quarter: 2008Q3

REPORT INFORMATION
  Report Type: 
  Country: None (occurrence: None)
  Receive Date: 20080716
  Receipt Date: 20080227
  Transmission Date: 20090109
  Serious: Yes (Other)
  Sender: FDA-Public Use
  Company Number: WWISSUE-154

PATIENT
  Age: 25 Year
  Sex: Female

DRUGS (2)
  1. DOXYCYCLINE HYCLATE [Suspect]
     Indication: ACNE
     Dosage: 1 B/D X 10 DAYS
     Dates: start: 20080202, end: 20080213
  2. TRI-LUMA [Concomitant]

REACTIONS (1)
  - STOMACH DISCOMFORT [None]
